FAERS Safety Report 4950066-5 (Version None)
Quarter: 2006Q1

REPORT INFORMATION
  Report Type: 
  Country: None (occurrence: None)
  Receive Date: 20060320
  Receipt Date: 20060320
  Transmission Date: 20060701
  Serious: Yes (Other)
  Sender: FDA-Public Use
  Company Number: None

PATIENT
  Sex: Female
  Weight: 127.4608 kg

DRUGS (16)
  1. OXYCONTIN [Suspect]
     Indication: ARTHRALGIA
     Dosage: 40 MG 2 TAB Q8 HRS
     Dates: start: 20050614
  2. OXYCONTIN [Suspect]
     Indication: ARTHRALGIA
     Dosage: 40 MG 2 TAB Q8 HRS
     Dates: start: 20050902
  3. AMBIEN [Concomitant]
  4. XANAX [Concomitant]
  5. SOMA [Concomitant]
  6. IMDUR [Concomitant]
  7. ASPIRIN [Concomitant]
  8. ADVAIR DISKUS 100/50 [Concomitant]
  9. TEVETEN [Concomitant]
  10. COREG [Concomitant]
  11. LASIX [Concomitant]
  12. POTASSIUM CHLORIDE [Concomitant]
  13. NORVASC [Concomitant]
  14. PRILOSEC [Concomitant]
  15. IMITREX [Concomitant]
  16. PERCOCET [Concomitant]

REACTIONS (2)
  - DRUG INEFFECTIVE [None]
  - PHARMACEUTICAL PRODUCT COMPLAINT [None]
